APPROVED DRUG PRODUCT: NAFCILLIN SODIUM
Active Ingredient: NAFCILLIN SODIUM
Strength: EQ 1GM BASE/VIAL
Dosage Form/Route: INJECTABLE;INJECTION
Application: A090560 | Product #001 | TE Code: AP
Applicant: ANTIBIOTICE SA
Approved: Oct 3, 2011 | RLD: No | RS: No | Type: RX